FAERS Safety Report 18601734 (Version 1)
Quarter: 2020Q4

REPORT INFORMATION
  Report Type: Spontaneous
  Country: BR (occurrence: BR)
  Receive Date: 20201210
  Receipt Date: 20201210
  Transmission Date: 20210114
  Serious: Yes (Hospitalization)
  Sender: FDA-Public Use
  Company Number: BR-IPSEN BIOPHARMACEUTICALS, INC.-2020-24525

PATIENT
  Sex: Female

DRUGS (5)
  1. RESTYLANE KYSEE [Suspect]
     Active Substance: HYALURONIC ACID
     Indication: SKIN COSMETIC PROCEDURE
  2. DYSPORT [Suspect]
     Active Substance: ABOBOTULINUMTOXINA
     Indication: SKIN COSMETIC PROCEDURE
     Dosage: DOSE NOT REPORTED
     Route: 065
     Dates: start: 20201103, end: 20201103
  3. RESTYLANE LIDOCAINE [Suspect]
     Active Substance: HYALURONIC ACID\LIDOCAINE
     Indication: SKIN WRINKLING
     Dosage: 0.3ML EACH DARK CIRCLES REGION
  4. RESTYLANE FYNESSE [Suspect]
     Active Substance: HYALURONIC ACID
     Indication: SKIN WRINKLING
  5. SCULPTRA [Suspect]
     Active Substance: POLYLACTIDE, L-
     Indication: SKIN WRINKLING
     Dosage: 1 VIAL APPLIED TO THE PERIOSTEUM OF ZYGOMATIC

REACTIONS (5)
  - Bone pain [Unknown]
  - Eye swelling [Unknown]
  - Eye infection [Unknown]
  - Eye oedema [Not Recovered/Not Resolved]
  - Erythema [Unknown]

NARRATIVE: CASE EVENT DATE: 2020
